FAERS Safety Report 4733285-2 (Version None)
Quarter: 2005Q3

REPORT INFORMATION
  Report Type: 
  Country: None (occurrence: None)
  Receive Date: 20050721
  Receipt Date: 20050521
  Transmission Date: 20060218
  Serious: No
  Sender: FDA-Public Use
  Company Number: 2005SP000890

PATIENT
  Sex: Female

DRUGS (3)
  1. LUNESTA [Suspect]
     Dosage: 1 MG;HS;ORAL
     Route: 048
     Dates: start: 20050101
  2. ESTROGEN NOS [Concomitant]
  3. VITAMINS [Concomitant]

REACTIONS (1)
  - ARTHRALGIA [None]
